FAERS Safety Report 7394232-0 (Version None)
Quarter: 2011Q2

REPORT INFORMATION
  Report Type: 
  Country: None (occurrence: None)
  Receive Date: 20110405
  Receipt Date: 20110323
  Transmission Date: 20111010
  Serious: Yes (Other)
  Sender: FDA-Public Use
  Company Number: JP-PFIZER INC-2011072792

PATIENT
  Age: 74 Year
  Sex: Male

DRUGS (6)
  1. GOSHAJINKIGAN [Suspect]
     Dosage: 7.5 G, DAILY
     Route: 048
     Dates: start: 20070116, end: 20110321
  2. CRAVIT [Concomitant]
     Dosage: UNK
     Route: 048
     Dates: start: 20101101, end: 20101107
  3. LEVOFLOXACIN [Concomitant]
     Dosage: UNK
     Route: 048
     Dates: start: 20101206, end: 20110214
  4. LIPITOR [Suspect]
     Dosage: 10 MG, DAILY
     Route: 048
     Dates: start: 20060801
  5. PARIET [Concomitant]
     Dosage: UNK
     Route: 048
     Dates: start: 20101101
  6. CONIEL [Concomitant]
     Dosage: UNK
     Route: 048
     Dates: start: 20060801

REACTIONS (1)
  - INTERSTITIAL LUNG DISEASE [None]
